FAERS Safety Report 9251939 (Version 1)
Quarter: 2013Q2

REPORT INFORMATION
  Report Type: Spontaneous
  Country: AU (occurrence: AU)
  Receive Date: 20130424
  Receipt Date: 20130424
  Transmission Date: 20140414
  Serious: Yes (Death)
  Sender: FDA-Public Use
  Company Number: AU-PFIZER INC-2013122262

PATIENT
  Age: 69 Year
  Sex: Male

DRUGS (13)
  1. CEFEPIME HCL [Suspect]
     Indication: CNS VENTRICULITIS
     Dosage: 2 G, 2X/DAY
  2. CEFEPIME HCL [Suspect]
     Indication: ABSCESS
  3. METRONIDAZOLE [Suspect]
     Indication: ABSCESS
     Dosage: 500 MG, 2X/DAY
  4. METRONIDAZOLE [Suspect]
     Indication: CNS VENTRICULITIS
  5. SULFAMETHOXAZOLE/TRIMETHOPRIM [Suspect]
     Indication: INFECTION
     Dosage: 320/1600 MG TWICE DAILY
  6. PHENOXYMETHYLPENICILLIN POTASSIUM [Suspect]
     Indication: CNS VENTRICULITIS
     Dosage: 2.4 G, 4X/DAY
  7. PHENOXYMETHYLPENICILLIN POTASSIUM [Suspect]
     Indication: ABSCESS
  8. ESOMEPRAZOLE [Concomitant]
     Indication: GASTROOESOPHAGEAL REFLUX DISEASE
     Dosage: 20 MG, 2X/DAY
  9. HYDROCHLOROTHIAZIDE/IRBESARTAN HYDROCHLORIDE [Concomitant]
     Indication: HYPERTENSION
     Dosage: 300/12.5 MG DAILY
  10. CEFTRIAXONE [Concomitant]
     Indication: LOWER RESPIRATORY TRACT INFECTION
     Dosage: 1 G, DAILY
  11. CEFTRIAXONE [Concomitant]
     Dosage: 2 G, 2X/DAY
  12. PREDNISOLONE [Concomitant]
     Indication: LOWER RESPIRATORY TRACT INFECTION
     Dosage: 50 MG,DAILY
  13. DEXAMETHASONE [Concomitant]
     Indication: BRAIN ABSCESS
     Dosage: 4 MG, 3X/DAY

REACTIONS (2)
  - Disease progression [Fatal]
  - Brain abscess [Fatal]
